FAERS Safety Report 13390585 (Version 1)
Quarter: 2017Q1

REPORT INFORMATION
  Report Type: Spontaneous
  Country: HU (occurrence: HU)
  Receive Date: 20170331
  Receipt Date: 20170331
  Transmission Date: 20170429
  Serious: Yes (Death)
  Sender: FDA-Public Use
  Company Number: HU-ACTELION-A-CH2017-151693

PATIENT
  Age: 44 Year
  Sex: Male

DRUGS (1)
  1. TRACLEER [Suspect]
     Active Substance: BOSENTAN
     Indication: PULMONARY ARTERIAL HYPERTENSION
     Dosage: 125 MG, BID
     Route: 048
     Dates: start: 20101019, end: 20170322

REACTIONS (5)
  - Pulmonary haemorrhage [Fatal]
  - Haemoptysis [Fatal]
  - Aspergillus infection [Unknown]
  - Therapeutic embolisation [Unknown]
  - Haemorrhage [Fatal]

NARRATIVE: CASE EVENT DATE: 2010
